FAERS Safety Report 6308890-2 (Version None)
Quarter: 2009Q3

REPORT INFORMATION
  Report Type: 
  Country: None (occurrence: None)
  Receive Date: 20090813
  Receipt Date: 20090416
  Transmission Date: 20100115
  Serious: No
  Sender: FDA-Public Use
  Company Number: US-ALLERGAN-0904730US

PATIENT
  Sex: Female

DRUGS (3)
  1. COMBIGAN [Suspect]
     Indication: GLAUCOMA
     Route: 047
     Dates: start: 20090330
  2. LISINOPRIL [Concomitant]
     Dosage: 10 MG, QD
  3. HYDROCHLOROTHIAZIDE [Concomitant]
     Dosage: 25 MG, QD

REACTIONS (3)
  - EYE DISCHARGE [None]
  - EYE PRURITUS [None]
  - OCULAR HYPERAEMIA [None]
